FAERS Safety Report 24905359 (Version 1)
Quarter: 2025Q1

REPORT INFORMATION
  Report Type: Spontaneous
  Country: US (occurrence: None)
  Receive Date: 20250130
  Receipt Date: 20250130
  Transmission Date: 20250408
  Serious: No
  Sender: FDA-CTU
  Company Number: None

PATIENT
  Age: 27 Year
  Sex: Male
  Weight: 59 kg

DRUGS (1)
  1. ALYFTREK [Suspect]
     Active Substance: DEUTIVACAFTOR\TEZACAFTOR\VANZACAFTOR
     Indication: Cystic fibrosis
     Dosage: FREQUENCY : DAILY;?
     Route: 048
     Dates: start: 20250110

REACTIONS (3)
  - Blood creatine increased [None]
  - Glomerular filtration rate increased [None]
  - Glomerular filtration rate abnormal [None]

NARRATIVE: CASE EVENT DATE: 20250121
